FAERS Safety Report 7360156-8 (Version None)
Quarter: 2011Q1

REPORT INFORMATION
  Report Type: 
  Country: None (occurrence: None)
  Receive Date: 20110318
  Receipt Date: 20110314
  Transmission Date: 20110831
  Serious: No
  Sender: FDA-Public Use
  Company Number: US-PFIZER INC-2011056278

PATIENT
  Sex: Male
  Weight: 127.4 kg

DRUGS (5)
  1. LANTUS [Concomitant]
     Indication: TYPE 2 DIABETES MELLITUS
     Dosage: UNK
  2. ZYVOX [Suspect]
     Indication: STAPHYLOCOCCAL INFECTION
     Dosage: 600 MG, 2X/DAY
     Route: 048
     Dates: start: 20101101, end: 20110314
  3. METRONIDAZOLE [Concomitant]
     Indication: PROPHYLACTIC CHEMOTHERAPY
     Dosage: UNK
  4. ZEBETA [Concomitant]
     Indication: CARDIAC FAILURE
     Dosage: UNK
  5. LISINOPRIL [Concomitant]
     Indication: CARDIAC FAILURE
     Dosage: UNK

REACTIONS (4)
  - VISUAL BRIGHTNESS [None]
  - VISUAL IMPAIRMENT [None]
  - NEUROPATHY PERIPHERAL [None]
  - VISION BLURRED [None]
